FAERS Safety Report 5726167-0 (Version None)
Quarter: 2008Q2

REPORT INFORMATION
  Report Type: 
  Country: None (occurrence: None)
  Receive Date: 20080502
  Receipt Date: 20080428
  Transmission Date: 20081010
  Serious: Yes (Death)
  Sender: FDA-Public Use
  Company Number: IT-BAYER-200816647GPV

PATIENT
  Age: 90 Year
  Sex: Male

DRUGS (9)
  1. AVELOX [Suspect]
     Indication: CHRONIC OBSTRUCTIVE PULMONARY DISEASE
     Dosage: TOTAL DAILY DOSE: 400 MG  UNIT DOSE: 400 MG
     Route: 048
     Dates: start: 20080401, end: 20080404
  2. DOSBEROTEC [Concomitant]
     Indication: CHRONIC RESPIRATORY FAILURE
     Route: 055
  3. ATEM [Concomitant]
     Indication: CHRONIC RESPIRATORY FAILURE
     Route: 045
  4. CLENILEXX [Concomitant]
     Indication: CHRONIC RESPIRATORY FAILURE
     Route: 055
  5. PEPTAZOL [Concomitant]
     Indication: GASTROOESOPHAGEAL REFLUX DISEASE
     Dosage: TOTAL DAILY DOSE: 20 MG  UNIT DOSE: 20 MG
     Route: 048
  6. FLUIMUCIL [Concomitant]
     Indication: CHRONIC OBSTRUCTIVE PULMONARY DISEASE
     Dosage: UNIT DOSE: 600 MG
     Route: 065
  7. SPIRIVA [Concomitant]
     Indication: CHRONIC RESPIRATORY FAILURE
     Route: 065
  8. ADALAT [Concomitant]
     Indication: SYSTOLIC HYPERTENSION
     Dosage: TOTAL DAILY DOSE: 30 MG  UNIT DOSE: 30 MG
     Route: 048
  9. OXYGEN [Concomitant]
     Indication: CHRONIC OBSTRUCTIVE PULMONARY DISEASE
     Route: 065

REACTIONS (1)
  - CARDIAC ARREST [None]
